FAERS Safety Report 8490504-7 (Version None)
Quarter: 2012Q3

REPORT INFORMATION
  Report Type: 
  Country: None (occurrence: None)
  Receive Date: 20120705
  Receipt Date: 20120626
  Transmission Date: 20120928
  Serious: Yes (Hospitalization)
  Sender: FDA-Public Use
  Company Number: PHHY2012CH055751

PATIENT
  Age: 85 Year
  Sex: Male

DRUGS (9)
  1. DIGOXIN [Suspect]
     Indication: MYOCARDIAL ISCHAEMIA
     Dosage: 0.125 MG, DAILY
     Route: 048
     Dates: end: 20120511
  2. LOSARTAN POTASSIUM AND HYDROCHLOROTHIAZIDE [Suspect]
     Indication: ESSENTIAL HYPERTENSION
     Dosage: 25 MG, DAILY
     Route: 048
     Dates: end: 20120511
  3. JANUMET [Suspect]
     Indication: TYPE 2 DIABETES MELLITUS
     Dosage: 50 MG, BID
     Route: 048
     Dates: end: 20120511
  4. MARCUMAR [Concomitant]
     Dosage: PER DAY, AS NECESSARY
     Route: 048
     Dates: end: 20120501
  5. ATORVASTATIN CALCIUM [Suspect]
     Indication: HYPERLIPIDAEMIA
     Dosage: 40 MG, DAILY
     Route: 048
  6. TORSEMIDE [Suspect]
     Dosage: 5 MG, DAILY
     Route: 048
     Dates: end: 20120501
  7. INSPRA [Concomitant]
     Dosage: 25 MG, DAILY
     Route: 048
  8. ASPIRIN [Concomitant]
     Dosage: 100 MG,DAILY
     Route: 048
  9. CONCOR [Concomitant]
     Dosage: 2.5 MG, DAILY
     Route: 048

REACTIONS (12)
  - PERSONALITY CHANGE [None]
  - BLOOD LACTIC ACID INCREASED [None]
  - TOXICITY TO VARIOUS AGENTS [None]
  - CARDIOACTIVE DRUG LEVEL INCREASED [None]
  - GENERAL PHYSICAL HEALTH DETERIORATION [None]
  - CONFUSIONAL STATE [None]
  - NAUSEA [None]
  - HYPOTENSION [None]
  - BRADYCARDIA [None]
  - RENAL FAILURE CHRONIC [None]
  - DIARRHOEA [None]
  - HALLUCINATION [None]
